FAERS Safety Report 8143552-0 (Version None)
Quarter: 2012Q1

REPORT INFORMATION
  Report Type: 
  Country: None (occurrence: None)
  Receive Date: 20120217
  Receipt Date: 20111108
  Transmission Date: 20120608
  Serious: No
  Sender: FDA-Public Use
  Company Number: US-GLAXOSMITHKLINE-A0936704A

PATIENT
  Age: 75 Year
  Sex: Male
  Weight: 69.2 kg

DRUGS (9)
  1. CLONIDINE HCL [Suspect]
     Indication: HYPERTENSION
     Dosage: .1MG TWICE PER DAY
     Route: 048
     Dates: start: 20101209
  2. FLOMAX [Concomitant]
     Dosage: .4MG TWICE PER DAY
     Route: 048
     Dates: start: 20110708
  3. OMEPRAZOLE [Concomitant]
     Dosage: 20MGD PER DAY
     Route: 048
     Dates: start: 20110609
  4. VOTRIENT [Suspect]
     Indication: RENAL CANCER
     Dosage: 200MG TWICE PER DAY
     Route: 048
     Dates: start: 20110609, end: 20110706
  5. SYNTHROID [Concomitant]
     Dosage: 125MCG PER DAY
     Route: 048
     Dates: start: 20110601
  6. ASPIRIN [Concomitant]
     Dosage: 81MGD PER DAY
     Route: 048
     Dates: start: 20110614
  7. VOTRIENT [Suspect]
     Dosage: 400MG TWICE PER DAY
     Route: 048
     Dates: start: 20110707
  8. ZOCOR [Concomitant]
     Indication: HYPERLIPIDAEMIA
     Dosage: 40MGD PER DAY
     Route: 048
     Dates: start: 20100925
  9. CARDIZEM [Suspect]
     Indication: HYPERTENSION
     Dosage: 180MGD PER DAY
     Route: 048
     Dates: start: 20100925

REACTIONS (7)
  - HYPERTENSION [None]
  - CHROMATURIA [None]
  - FATIGUE [None]
  - AMNESIA [None]
  - DRUG INEFFECTIVE [None]
  - LIMB DISCOMFORT [None]
  - BLOOD PRESSURE INCREASED [None]
